FAERS Safety Report 11982026 (Version 1)
Quarter: 2016Q1

REPORT INFORMATION
  Report Type: Spontaneous
  Country: US (occurrence: US)
  Receive Date: 20160201
  Receipt Date: 20160201
  Transmission Date: 20160526
  Serious: No
  Sender: FDA-Public Use
  Company Number: US-AMGEN-USASP2016009205

PATIENT
  Age: 63 Year
  Sex: Female

DRUGS (18)
  1. NEURONTIN [Concomitant]
     Active Substance: GABAPENTIN
  2. TENORMIN [Concomitant]
     Active Substance: ATENOLOL
  3. CLARITIN [Concomitant]
     Active Substance: LORATADINE
  4. PEPCID                             /00305201/ [Concomitant]
     Active Substance: ALUMINUM HYDROXIDE\MAGNESIUM CARBONATE
  5. VITAMIN E                          /00110501/ [Concomitant]
     Active Substance: TOCOPHEROL
  6. ZOLOFT [Concomitant]
     Active Substance: SERTRALINE HYDROCHLORIDE
  7. ZYLOPRIM [Concomitant]
     Active Substance: ALLOPURINOL
  8. ZOCOR [Concomitant]
     Active Substance: SIMVASTATIN
  9. ENBREL [Suspect]
     Active Substance: ETANERCEPT
     Indication: RHEUMATOID ARTHRITIS
     Dosage: 50 MG, QWK
     Route: 058
  10. BENTYL [Concomitant]
     Active Substance: DICYCLOMINE HYDROCHLORIDE
  11. ECOTRIN [Concomitant]
     Active Substance: ASPIRIN
  12. PERCOCET                           /00446701/ [Concomitant]
     Active Substance: ACETAMINOPHEN\OXYCODONE HYDROCHLORIDE\OXYCODONE TEREPHTHALATE
  13. XALATAN [Concomitant]
     Active Substance: LATANOPROST
  14. VITAMIN C [Concomitant]
     Active Substance: ASCORBIC ACID
  15. BIOTIN [Concomitant]
     Active Substance: BIOTIN
  16. CYCLOBENZAPRINE [Concomitant]
     Active Substance: CYCLOBENZAPRINE
  17. LASIX [Concomitant]
     Active Substance: FUROSEMIDE
  18. VALIUM [Concomitant]
     Active Substance: DIAZEPAM

REACTIONS (2)
  - Injection site pain [Recovered/Resolved]
  - Injection site reaction [Recovered/Resolved]

NARRATIVE: CASE EVENT DATE: 20160114
